FAERS Safety Report 4307399-5 (Version None)
Quarter: 2004Q1

REPORT INFORMATION
  Report Type: 
  Country: None (occurrence: None)
  Receive Date: 20040226
  Receipt Date: 20040213
  Transmission Date: 20041129
  Serious: Yes (Hospitalization, Other)
  Sender: FDA-Public Use
  Company Number: 2004002257

PATIENT
  Age: 74 Year
  Sex: Male
  Weight: 60 kg

DRUGS (10)
  1. LIPITOR [Suspect]
     Indication: HYPERCHOLESTEROLAEMIA
     Dosage: 5 MG DAILY, ORAL
     Route: 048
     Dates: start: 20031108, end: 20031222
  2. ALLOPURINOL [Suspect]
     Indication: HYPERURICAEMIA
     Dosage: 100 MG ORAL
     Route: 048
     Dates: start: 20031116, end: 20031222
  3. NIFEDIPINE [Suspect]
     Indication: HYPERTENSION
     Dosage: 20 MG DAILY, ORAL
     Route: 048
     Dates: start: 20031108, end: 20031222
  4. DILTIAZEM HYDROCHLORIDE [Suspect]
     Indication: HYPERTENSION
     Dosage: 100 MG DAILY, ORAL
     Route: 048
     Dates: start: 20031108, end: 20031222
  5. CARDENALIN (DOXAZOSIN MESILATE) (DOXAZOSIN) [Suspect]
     Indication: HYPERTENSION
     Dosage: 4 MG DAILY, ORAL
     Route: 048
     Dates: start: 20031108, end: 20031222
  6. FAMOTIDINE [Concomitant]
  7. XANTOFYL PALMITATE (XANTOFYL PALMITATE) [Concomitant]
  8. GLICLAZIDE (GLICLAZIDE) [Concomitant]
  9. EPOETIN BETA (EPOETIN BETA) [Concomitant]
  10. FUROSEMIDE [Concomitant]

REACTIONS (11)
  - ALANINE AMINOTRANSFERASE INCREASED [None]
  - ASPARTATE AMINOTRANSFERASE INCREASED [None]
  - BLOOD LACTATE DEHYDROGENASE INCREASED [None]
  - FUNGAL SKIN INFECTION [None]
  - HYPERSENSITIVITY [None]
  - HYPOGLYCAEMIA [None]
  - LIVER DISORDER [None]
  - OEDEMA PERIPHERAL [None]
  - PURPURA [None]
  - SWELLING FACE [None]
  - WHITE BLOOD CELL COUNT INCREASED [None]
